FAERS Safety Report 6981040-5 (Version None)
Quarter: 2010Q3

REPORT INFORMATION
  Report Type: 
  Country: None (occurrence: None)
  Receive Date: 20100914
  Receipt Date: 20100910
  Transmission Date: 20110219
  Serious: Yes (Hospitalization)
  Sender: FDA-Public Use
  Company Number: GXKR2010DE10248

PATIENT
  Age: 66 Year
  Sex: Female
  Weight: 53 kg

DRUGS (4)
  1. TRIARESE (NGX) [Suspect]
     Indication: HYPERTENSION
     Dosage: 1X1
     Route: 048
     Dates: end: 20100801
  2. LISINOPRIL [Concomitant]
     Dosage: 1-0-1-0
     Route: 048
  3. ATENOLOL ^ALIUD PHARMA^ [Concomitant]
     Dosage: 1/2 -0-1/2-0
     Route: 048
  4. IBUBETA [Concomitant]
     Dosage: UNK
     Dates: end: 20100809

REACTIONS (3)
  - CONVULSION [None]
  - HEADACHE [None]
  - HYPONATRAEMIA [None]
